FAERS Safety Report 7987898-5 (Version None)
Quarter: 2011Q4

REPORT INFORMATION
  Report Type: 
  Country: None (occurrence: None)
  Receive Date: 20111216
  Receipt Date: 20111207
  Transmission Date: 20120403
  Serious: Yes (Hospitalization)
  Sender: FDA-Public Use
  Company Number: FR-ASTRAZENECA-2011SE71765

PATIENT
  Age: 88 Year
  Sex: Male

DRUGS (10)
  1. FENOFIBRATE [Concomitant]
  2. SECTRAL [Suspect]
     Indication: ATRIAL FIBRILLATION
     Route: 048
     Dates: start: 20050101, end: 20111001
  3. LEXOMIL ROCHE [Concomitant]
  4. RAMIPRIL [Suspect]
     Route: 048
     Dates: start: 20111001
  5. AMLODIPINE BESYLATE [Concomitant]
  6. IMOVANE [Suspect]
     Route: 048
     Dates: start: 20050101
  7. NEXIUM [Suspect]
     Route: 048
     Dates: start: 20050101, end: 20111001
  8. NEXIUM [Suspect]
     Route: 048
     Dates: start: 20111001
  9. RAMIPRIL [Suspect]
     Indication: MYOCARDIAL ISCHAEMIA
     Route: 048
     Dates: start: 20050101, end: 20111001
  10. PLAVIX [Concomitant]

REACTIONS (5)
  - HYPONATRAEMIA [None]
  - HYPERKALAEMIA [None]
  - COGNITIVE DISORDER [None]
  - BRADYCARDIA [None]
  - MALAISE [None]
